FAERS Safety Report 10488703 (Version 2)
Quarter: 2014Q4

REPORT INFORMATION
  Report Type: Spontaneous
  Country: US (occurrence: None)
  Receive Date: 20140930
  Receipt Date: 20141029
  Transmission Date: 20150528
  Serious: No
  Sender: FDA-Public Use
  Company Number: DEP_02288_2014

PATIENT
  Age: 56 Year
  Sex: Male
  Weight: 90.72 kg

DRUGS (2)
  1. GRALISE [Suspect]
     Active Substance: GABAPENTIN
     Indication: SPINAL DISORDER
     Dosage: SAMPLE PACK ORAL
     Dates: start: 20140903, end: 20140905
  2. GRALISE [Suspect]
     Active Substance: GABAPENTIN
     Indication: OFF LABEL USE
     Dosage: SAMPLE PACK ORAL
     Dates: start: 20140903, end: 20140905

REACTIONS (9)
  - Depression [None]
  - Insomnia [None]
  - Tremor [None]
  - Chills [None]
  - Irritability [None]
  - Hyperhidrosis [None]
  - Disturbance in attention [None]
  - Aggression [None]
  - Suicidal ideation [None]

NARRATIVE: CASE EVENT DATE: 20140903
